FAERS Safety Report 10064186 (Version 2)
Quarter: 2014Q1

REPORT INFORMATION
  Report Type: Spontaneous
  Country: US (occurrence: None)
  Receive Date: 20140107
  Receipt Date: 20140131
  Transmission Date: 20141002
  Serious: Yes (Hospitalization)
  Sender: FDA-Public Use
  Company Number: US-000864

PATIENT
  Age: 44 Year
  Sex: Male

DRUGS (9)
  1. GATTEX [Suspect]
     Indication: SHORT-BOWEL SYNDROME
     Dosage: STREN/VOLUM: 0.26|FREQU: 1 X DAY SUBCUTANEOUS
     Route: 058
     Dates: start: 201310, end: 20131212
  2. SOLUTIONS FOR PARENTERAL NUTRITION [Concomitant]
  3. OTHER COMBINATIONS OF NUTRIENTS [Concomitant]
  4. NEXIUM [Concomitant]
  5. ANTIBIOTICS [Concomitant]
  6. VITAMIN D NOS [Concomitant]
  7. VITAMINS NOS [Concomitant]
  8. NUTREN [Concomitant]
  9. XIFAXAN [Concomitant]

REACTIONS (7)
  - Nausea [None]
  - Gastrointestinal sounds abnormal [None]
  - Insomnia [None]
  - White blood cell count decreased [None]
  - Febrile neutropenia [None]
  - Drug dose omission [None]
  - Feeling abnormal [None]
